FAERS Safety Report 5667311-3 (Version None)
Quarter: 2008Q1

REPORT INFORMATION
  Report Type: 
  Country: None (occurrence: None)
  Receive Date: 20080315
  Receipt Date: 20080225
  Transmission Date: 20080703
  Serious: No
  Sender: FDA-Public Use
  Company Number: US-ABBOTT-08P-163-0434202-00

PATIENT
  Sex: Female
  Weight: 56.75 kg

DRUGS (7)
  1. HUMIRA [Suspect]
     Indication: CROHN'S DISEASE
     Dosage: 160 MG STARTER DOSE, THEN 80 MG X1, THEN 40 MG EVERY OTHER WEEK (UNIT DOSE)
     Route: 058
     Dates: start: 20070615, end: 20071222
  2. HUMIRA [Suspect]
     Route: 058
     Dates: start: 20070615, end: 20071223
  3. ZYRTEC [Concomitant]
     Indication: SINUS HEADACHE
     Route: 048
  4. ZYRTEC [Concomitant]
     Indication: SEASONAL ALLERGY
  5. ORTHO-NOVUM [Concomitant]
     Indication: CONTRACEPTION
     Route: 048
  6. MULTI-VITAMIN [Concomitant]
     Indication: DRUG USE FOR UNKNOWN INDICATION
     Route: 048
  7. MESALAMINE [Concomitant]
     Indication: CROHN'S DISEASE
     Dosage: 8-400 MG TABLETS (UNIT DOSE)
     Route: 048
     Dates: end: 20080104

REACTIONS (6)
  - ARTHRALGIA [None]
  - CONTUSION [None]
  - DRUG INEFFECTIVE [None]
  - PRURITUS [None]
  - RASH [None]
  - RASH GENERALISED [None]
